FAERS Safety Report 8670644 (Version 2)
Quarter: 2013Q3

REPORT INFORMATION
  Report Type: Spontaneous
  Country: US (occurrence: US)
  Receive Date: 20120718
  Receipt Date: 20130802
  Transmission Date: 20140515
  Serious: No
  Sender: FDA-Public Use
  Company Number: US-BRISTOL-MYERS SQUIBB COMPANY-15947310

PATIENT
  Age: 82 Year
  Sex: Female

DRUGS (7)
  1. WARFARIN SODIUM [Suspect]
     Dates: start: 201011
  2. COUMADIN [Suspect]
  3. CARDIZEM [Concomitant]
  4. LISINOPRIL [Concomitant]
  5. LYRICA [Concomitant]
  6. VITAMIN D [Concomitant]
  7. OS-CAL [Concomitant]

REACTIONS (4)
  - International normalised ratio fluctuation [Unknown]
  - Arthralgia [Unknown]
  - Groin pain [Unknown]
  - Skin discolouration [Unknown]
